FAERS Safety Report 9464097 (Version 1)
Quarter: 2013Q3

REPORT INFORMATION
  Report Type: Report from Study
  Country: US (occurrence: US)
  Receive Date: 20130819
  Receipt Date: 20130819
  Transmission Date: 20140515
  Serious: Yes (Hospitalization)
  Sender: FDA-Public Use
  Company Number: US-SANOFI-AVENTIS-2013SA081939

PATIENT
  Age: 51 Year
  Sex: Female

DRUGS (5)
  1. AUBAGIO [Suspect]
     Indication: MULTIPLE SCLEROSIS
     Route: 048
     Dates: start: 20130507, end: 20130713
  2. AUBAGIO [Suspect]
     Indication: MULTIPLE SCLEROSIS
     Route: 048
     Dates: start: 20130718
  3. KEPPRA [Concomitant]
  4. BACLOFEN [Concomitant]
  5. FLOMAX [Concomitant]

REACTIONS (2)
  - Convulsion [Recovered/Resolved]
  - Pneumonia aspiration [Recovered/Resolved]
